FAERS Safety Report 9321914 (Version 8)
Quarter: 2014Q2

REPORT INFORMATION
  Report Type: Spontaneous
  Country: US (occurrence: US)
  Receive Date: 20130531
  Receipt Date: 20140611
  Transmission Date: 20141212
  Serious: Yes (Other)
  Sender: FDA-Public Use
  Company Number: US-PFIZER INC-2013164514

PATIENT
  Age: 64 Year
  Sex: Female
  Weight: 71 kg

DRUGS (9)
  1. LIPITOR [Suspect]
     Indication: LOW DENSITY LIPOPROTEIN INCREASED
     Dosage: UNK
     Route: 048
     Dates: start: 1997
  2. LIPITOR [Suspect]
     Indication: CARDIOVASCULAR EVENT PROPHYLAXIS
     Dosage: 10 MG, UNK
     Route: 048
     Dates: start: 20020326
  3. LIPITOR [Suspect]
     Dosage: 20 MG, UNK
     Route: 048
     Dates: start: 20031021
  4. LIPITOR [Suspect]
     Dosage: 40 MG, 1X/DAY
     Route: 048
     Dates: start: 20120326, end: 20120726
  5. SINGULAIR [Concomitant]
     Dosage: 10 MG, 1X/DAY
     Route: 048
     Dates: end: 20120325
  6. TRICOR [Concomitant]
     Dosage: 1 DF, 1X/DAY AT NIGHT
     Route: 048
     Dates: end: 20120326
  7. DULERA [Concomitant]
     Dosage: INHALE 2 PUFFS DAILY
     Dates: end: 20120327
  8. EVISTA [Concomitant]
     Dosage: 60 MG, 1X/DAY
     Route: 048
     Dates: end: 20120327
  9. CALCIUM [Concomitant]
     Dosage: UNK
     Dates: start: 199401

REACTIONS (1)
  - Type 2 diabetes mellitus [Not Recovered/Not Resolved]
